FAERS Safety Report 7001376-1 (Version None)
Quarter: 2010Q3

REPORT INFORMATION
  Report Type: 
  Country: None (occurrence: None)
  Receive Date: 20100920
  Receipt Date: 20100628
  Transmission Date: 20110219
  Serious: No
  Sender: FDA-Public Use
  Company Number: US-ASTRAZENECA-2010SE30082

PATIENT
  Age: 55 Year
  Sex: Male

DRUGS (1)
  1. SEROQUEL [Suspect]
     Indication: DEPRESSION
     Route: 048
     Dates: start: 20070101, end: 20100401

REACTIONS (4)
  - ANGER [None]
  - DEPRESSION [None]
  - DRUG DOSE OMISSION [None]
  - MENTAL DISORDER [None]
